FAERS Safety Report 7036263-6 (Version None)
Quarter: 2010Q4

REPORT INFORMATION
  Report Type: 
  Country: None (occurrence: None)
  Receive Date: 20101008
  Receipt Date: 20100928
  Transmission Date: 20110411
  Serious: Yes (Hospitalization)
  Sender: FDA-Public Use
  Company Number: FR-ABBOTT-10P-056-0671127-00

PATIENT
  Sex: Female
  Weight: 85 kg

DRUGS (9)
  1. HUMIRA [Suspect]
     Indication: ANKYLOSING SPONDYLITIS
     Route: 058
     Dates: start: 20100407, end: 20100825
  2. HUMIRA [Suspect]
     Indication: CROHN'S DISEASE
  3. FORLAX [Concomitant]
     Indication: CONSTIPATION
     Route: 048
  4. LACTULOSE [Concomitant]
     Indication: CONSTIPATION
     Route: 048
  5. NEXIUM [Concomitant]
     Indication: PRODUCT USED FOR UNKNOWN INDICATION
     Route: 048
  6. FEROGRADE [Concomitant]
     Indication: CROHN'S DISEASE
     Route: 048
  7. STRESAM [Concomitant]
     Indication: PRODUCT USED FOR UNKNOWN INDICATION
  8. AVLOCARDYL [Concomitant]
     Indication: SUPRAVENTRICULAR TACHYCARDIA
     Route: 048
  9. KALEORID [Concomitant]
     Indication: PRODUCT USED FOR UNKNOWN INDICATION
     Route: 048

REACTIONS (5)
  - DYSPNOEA [None]
  - HYPERSENSITIVITY [None]
  - PRURITUS ALLERGIC [None]
  - SWELLING FACE [None]
  - URTICARIA [None]
